FAERS Safety Report 10007189 (Version 1)
Quarter: 2014Q1

REPORT INFORMATION
  Report Type: Spontaneous
  Country: US (occurrence: None)
  Receive Date: 20140311
  Receipt Date: 20140311
  Transmission Date: 20141002
  Serious: Yes (Disabling, Other)
  Sender: FDA-Public Use
  Company Number: 201402099

PATIENT
  Age: 77 Year
  Sex: Male
  Weight: 90.72 kg

DRUGS (2)
  1. TESTIM [Suspect]
     Indication: ANDROGEN REPLACEMENT THERAPY
     Route: 062
     Dates: start: 2012
  2. SIMVASTATIN (SIMVASTATIN) [Concomitant]

REACTIONS (3)
  - Cerebrovascular accident [None]
  - Coronary artery thrombosis [None]
  - Pulmonary thrombosis [None]
